FAERS Safety Report 9846243 (Version 1)
Quarter: 2014Q1

REPORT INFORMATION
  Report Type: Spontaneous
  Country: AU (occurrence: AU)
  Receive Date: 20140127
  Receipt Date: 20140127
  Transmission Date: 20141002
  Serious: Yes (Disabling)
  Sender: FDA-Public Use
  Company Number: PHHY2014AU005391

PATIENT
  Age: 17 Year
  Sex: Female

DRUGS (2)
  1. OLANZAPINE [Suspect]
     Indication: SCHIZOPHRENIA
  2. QUETIAPINE [Suspect]
     Indication: SCHIZOPHRENIA

REACTIONS (4)
  - Circulatory collapse [Recovered/Resolved]
  - Tardive dyskinesia [Recovered/Resolved]
  - Dizziness [Recovered/Resolved]
  - Drug effect incomplete [Recovered/Resolved]
